FAERS Safety Report 4779704-7 (Version None)
Quarter: 2005Q3

REPORT INFORMATION
  Report Type: 
  Country: None (occurrence: None)
  Receive Date: 20050923
  Receipt Date: 20050914
  Transmission Date: 20060218
  Serious: Yes (Other)
  Sender: FDA-Public Use
  Company Number: 2005118781

PATIENT
  Age: 62 Year
  Sex: Male

DRUGS (18)
  1. ZOLOFT [Suspect]
     Indication: DEPRESSION
     Dosage: 50 MG (50 MG, 1 IN 1 D), ORAL
     Route: 048
     Dates: start: 19930101
  2. ZOLOFT [Suspect]
     Indication: MOOD ALTERED
     Dosage: 50 MG (50 MG, 1 IN 1 D), ORAL
     Route: 048
     Dates: start: 19930101
  3. ZOLOFT [Suspect]
     Indication: SELF ESTEEM DECREASED
     Dosage: 50 MG (50 MG, 1 IN 1 D), ORAL
     Route: 048
     Dates: start: 19930101
  4. NORVASC [Suspect]
     Indication: HYPERTENSION
     Dosage: 5 MG, 1 IN 1 D, ORAL
     Route: 048
     Dates: start: 19960101
  5. NORVASC [Suspect]
     Indication: TACHYCARDIA
     Dosage: 5 MG, 1 IN 1 D, ORAL
     Route: 048
     Dates: start: 19960101
  6. PROCARDIA XL [Suspect]
     Indication: ILL-DEFINED DISORDER
  7. NITROGLYCERIN [Concomitant]
  8. XANAX [Concomitant]
  9. AMBIEN [Concomitant]
  10. PEPCID [Concomitant]
  11. LORCET PLUS (HYDROCODONE BITARTRATE, PARACETAMOL) [Concomitant]
  12. NIASPAN [Concomitant]
  13. LOVASTATIN [Concomitant]
  14. NITROSTAT [Concomitant]
  15. SPIRIVA   PFIZER  (TIOTROPIUM BROMIDE) [Concomitant]
  16. ALBUTEROL [Concomitant]
  17. PRAVACHOL [Concomitant]
  18. TOPROL-XL [Concomitant]

REACTIONS (8)
  - BLOOD PRESSURE INCREASED [None]
  - BRONCHIECTASIS [None]
  - CHRONIC OBSTRUCTIVE PULMONARY DISEASE [None]
  - MALAISE [None]
  - MYOCARDIAL INFARCTION [None]
  - NASOPHARYNGITIS [None]
  - TACHYCARDIA [None]
  - WEIGHT DECREASED [None]
